FAERS Safety Report 13608805 (Version 2)
Quarter: 2017Q2

REPORT INFORMATION
  Report Type: Report from Study
  Country: CA (occurrence: CA)
  Receive Date: 20170602
  Receipt Date: 20170616
  Transmission Date: 20170830
  Serious: Yes (Hospitalization, Other)
  Sender: FDA-Public Use
  Company Number: CA-TAKEDA-2017TUS012102

PATIENT
  Age: 47 Year
  Sex: Male
  Weight: 77 kg

DRUGS (18)
  1. PANTOLOC [Suspect]
     Active Substance: PANTOPRAZOLE SODIUM
     Indication: DYSPEPSIA
     Dosage: 20 MG, QD
     Route: 065
     Dates: start: 2013
  2. PLAVIX [Concomitant]
     Active Substance: CLOPIDOGREL BISULFATE
     Dosage: UNK UNK, QD
     Dates: start: 2013, end: 20170422
  3. METFORMIN [Concomitant]
     Active Substance: METFORMIN HYDROCHLORIDE
     Dosage: 50 UNK, UNK
     Route: 048
  4. SIMPONI [Concomitant]
     Active Substance: GOLIMUMAB
     Dosage: UNK
     Dates: start: 20160201
  5. DECADRON [Concomitant]
     Active Substance: DEXAMETHASONE
     Dosage: 4 MG, TID
     Route: 048
  6. TYLENOL WITH CODEINE [Concomitant]
     Active Substance: ACETAMINOPHEN\CODEINE PHOSPHATE
     Route: 048
  7. ASA [Concomitant]
     Active Substance: ASPIRIN
     Dosage: 81 MG, QD
     Dates: end: 20170422
  8. VEDOLIZUMAB [Suspect]
     Active Substance: VEDOLIZUMAB
     Indication: COLITIS ULCERATIVE
     Dosage: 300 MG, UNK
     Route: 042
     Dates: start: 20160705
  9. CANDESARTAN. [Concomitant]
     Active Substance: CANDESARTAN
     Dosage: 8 MG, QD
     Route: 048
  10. CRESTOR [Concomitant]
     Active Substance: ROSUVASTATIN CALCIUM
     Dosage: UNK
  11. METFORMIN [Concomitant]
     Active Substance: METFORMIN HYDROCHLORIDE
     Dosage: 500 MG, BID
     Route: 048
  12. TELMISARTAN. [Concomitant]
     Active Substance: TELMISARTAN
     Dosage: 20 MG, QD
     Dates: start: 201601
  13. DIAMICRON [Concomitant]
     Active Substance: GLICLAZIDE
     Dosage: 30 MG, QD
     Route: 048
  14. METOPROLOL. [Concomitant]
     Active Substance: METOPROLOL
     Dosage: 50 MG, BID
     Dates: start: 2013
  15. ASPIRIN. [Concomitant]
     Active Substance: ASPIRIN
     Dosage: 81 MG, QD
  16. LIPITOR [Concomitant]
     Active Substance: ATORVASTATIN CALCIUM
     Dosage: 40 MG, QD
     Route: 048
     Dates: start: 2013
  17. IMURAN [Concomitant]
     Active Substance: AZATHIOPRINE
     Dosage: 50 MG, UNK
     Dates: start: 20031231
  18. DEXAMETHASONE. [Concomitant]
     Active Substance: DEXAMETHASONE
     Dosage: UNK

REACTIONS (2)
  - Meningioma benign [Recovering/Resolving]
  - Iritis [Unknown]
